FAERS Safety Report 22952262 (Version 3)
Quarter: 2024Q1

REPORT INFORMATION
  Report Type: Report from Study
  Country: FR (occurrence: None)
  Receive Date: 20230918
  Receipt Date: 20240202
  Transmission Date: 20240410
  Serious: Yes (Other)
  Sender: FDA-Public Use
  Company Number: 2023A210263

PATIENT
  Age: 851 Month
  Sex: Male
  Weight: 65 kg

DRUGS (9)
  1. IMFINZI [Suspect]
     Active Substance: DURVALUMAB
     Indication: Biliary cancer metastatic
     Route: 042
     Dates: start: 20230724
  2. IMFINZI [Suspect]
     Active Substance: DURVALUMAB
     Indication: Biliary cancer metastatic
     Route: 042
     Dates: start: 20230911, end: 20231106
  3. IMFINZI [Suspect]
     Active Substance: DURVALUMAB
     Indication: Biliary cancer metastatic
     Route: 042
     Dates: start: 20231211
  4. GEMCITABINE [Suspect]
     Active Substance: GEMCITABINE
     Indication: Biliary cancer metastatic
     Dosage: UNSPECIFIED DOSE
     Route: 042
     Dates: start: 20230724
  5. CISPLATIN [Suspect]
     Active Substance: CISPLATIN
     Indication: Biliary cancer metastatic
     Dosage: UNSPECIFIED DOSE
     Route: 042
     Dates: start: 20230724
  6. PANTOPRAZOLE [Concomitant]
     Active Substance: PANTOPRAZOLE
  7. NEBIVOLOL [Concomitant]
     Active Substance: NEBIVOLOL
  8. ASPIRIN [Concomitant]
     Active Substance: ASPIRIN
  9. ROSUVASTATIN [Concomitant]
     Active Substance: ROSUVASTATIN

REACTIONS (5)
  - Deep vein thrombosis [Not Recovered/Not Resolved]
  - Thrombocytopenia [Recovered/Resolved]
  - Toxicity to various agents [Recovered/Resolved]
  - Diarrhoea [Recovered/Resolved]
  - Renal colic [Recovered/Resolved]

NARRATIVE: CASE EVENT DATE: 20230821
